FAERS Safety Report 12755121 (Version 2)
Quarter: 2016Q4

REPORT INFORMATION
  Report Type: Report from Study
  Country: US (occurrence: US)
  Receive Date: 20160916
  Receipt Date: 20161027
  Transmission Date: 20170207
  Serious: Yes (Life-Threatening, Other)
  Sender: FDA-Public Use
  Company Number: US-UCBSA-2016008385

PATIENT
  Age: 55 Year
  Sex: Female
  Weight: 100 kg

DRUGS (3)
  1. TRAMADOL. [Concomitant]
     Active Substance: TRAMADOL
     Indication: PAIN
     Dosage: UNK
  2. CERTOLIZUMAB PEGOL [Suspect]
     Active Substance: CERTOLIZUMAB PEGOL
     Indication: PSORIATIC ARTHROPATHY
     Dosage: 400 MG, MONTHLY (QM)
     Route: 058
     Dates: start: 20160209, end: 20160505
  3. VOLTAREN [Concomitant]
     Active Substance: DICLOFENAC SODIUM
     Indication: ARTHRALGIA
     Dosage: UNK, AS NEEDED (PRN)

REACTIONS (9)
  - Urinary tract infection bacterial [Recovering/Resolving]
  - Malaise [Recovered/Resolved]
  - Tongue discolouration [Recovered/Resolved]
  - Headache [Recovering/Resolving]
  - Bacterial vaginosis [Unknown]
  - Feeling abnormal [Unknown]
  - Rash macular [Recovered/Resolved]
  - Injection site discolouration [Recovered/Resolved]
  - Night sweats [Recovered/Resolved]

NARRATIVE: CASE EVENT DATE: 20160209
